FAERS Safety Report 21945303 (Version 1)
Quarter: 2023Q1

REPORT INFORMATION
  Report Type: Spontaneous
  Country: US (occurrence: None)
  Receive Date: 20230202
  Receipt Date: 20230202
  Transmission Date: 20230418
  Serious: No
  Sender: FDA-Public Use
  Company Number: 2023A022317

PATIENT
  Sex: Female
  Weight: 74.8 kg

DRUGS (4)
  1. FASLODEX [Suspect]
     Active Substance: FULVESTRANT
     Indication: Breast cancer female
     Route: 030
     Dates: start: 201701
  2. GABAPENTIN [Concomitant]
     Active Substance: GABAPENTIN
  3. ASPIRIN [Concomitant]
     Active Substance: ASPIRIN
  4. IBRANCE [Concomitant]
     Active Substance: PALBOCICLIB

REACTIONS (7)
  - Spinal osteoarthritis [Unknown]
  - Intervertebral disc disorder [Unknown]
  - Sensory disturbance [Unknown]
  - Sciatic nerve injury [Unknown]
  - Malabsorption from injection site [Unknown]
  - Injection site pain [Not Recovered/Not Resolved]
  - Wrong technique in product usage process [Unknown]
